FAERS Safety Report 16142033 (Version 1)
Quarter: 2019Q2

REPORT INFORMATION
  Report Type: Spontaneous
  Country: US (occurrence: US)
  Receive Date: 20190331
  Receipt Date: 20190331
  Transmission Date: 20190711
  Serious: Yes (Life-Threatening, Hospitalization)
  Sender: FDA-Public Use
  Company Number: None

PATIENT
  Age: 25 Year
  Sex: Female
  Weight: 130 kg

DRUGS (4)
  1. SKYLA [Suspect]
     Active Substance: LEVONORGESTREL
  2. BUSPAR [Concomitant]
     Active Substance: BUSPIRONE HYDROCHLORIDE
  3. PROZAC [Concomitant]
     Active Substance: FLUOXETINE HYDROCHLORIDE
  4. LEXAPRO [Concomitant]
     Active Substance: ESCITALOPRAM OXALATE

REACTIONS (5)
  - Abdominal pain [None]
  - Pregnancy with contraceptive device [None]
  - Uterine haemorrhage [None]
  - Ectopic pregnancy with contraceptive device [None]
  - Uterine dilation and curettage [None]

NARRATIVE: CASE EVENT DATE: 20190116
